FAERS Safety Report 6620272-2 (Version None)
Quarter: 2010Q1

REPORT INFORMATION
  Report Type: 
  Country: None (occurrence: None)
  Receive Date: 20100309
  Receipt Date: 20100303
  Transmission Date: 20100710
  Serious: Yes (Life-Threatening)
  Sender: FDA-Public Use
  Company Number: US-CELGENEUS-163-C5013-10030484

PATIENT
  Sex: Male
  Weight: 110.2 kg

DRUGS (5)
  1. CC-5013\PLACEBO [Suspect]
     Route: 048
     Dates: start: 20100111, end: 20100201
  2. CC-5013\PLACEBO [Suspect]
     Route: 048
     Dates: start: 20100208
  3. ALLOPURINOL [Concomitant]
     Indication: GOUT
     Route: 048
     Dates: start: 20080301
  4. ADVICOR [Concomitant]
     Indication: PROPHYLAXIS
     Route: 048
     Dates: start: 20080301
  5. ASPIRIN [Concomitant]
     Indication: PROPHYLAXIS
     Route: 048
     Dates: start: 20080301

REACTIONS (1)
  - NEUTROPENIA [None]
